FAERS Safety Report 18875699 (Version 1)
Quarter: 2021Q1

REPORT INFORMATION
  Report Type: Spontaneous
  Country: FR (occurrence: FR)
  Receive Date: 20210211
  Receipt Date: 20210211
  Transmission Date: 20210420
  Serious: Yes (Death, Other)
  Sender: FDA-Public Use
  Company Number: FR-CADILA HEALTHCARE LIMITED-FR-ZYDUS-061669

PATIENT

DRUGS (6)
  1. PARACETAMOL [Interacting]
     Active Substance: ACETAMINOPHEN
     Indication: PRODUCT USE IN UNAPPROVED INDICATION
     Dosage: 1000 MILLIGRAM, PRN
  2. GABAPENTINE [Interacting]
     Active Substance: GABAPENTIN
     Dosage: UNK (DOSE INCREASED)
     Route: 065
     Dates: start: 2019
  3. GABAPENTINE [Interacting]
     Active Substance: GABAPENTIN
     Indication: DEPRESSIVE SYMPTOM
     Dosage: UNK (DOSE INCREASED)
     Route: 065
     Dates: start: 2018
  4. BROMAZEPAM [Concomitant]
     Active Substance: BROMAZEPAM
     Indication: PRODUCT USE IN UNAPPROVED INDICATION
     Dosage: 1000 MILLIGRAM, QD
  5. CODEINE [Concomitant]
     Active Substance: CODEINE
     Indication: PRODUCT USE IN UNAPPROVED INDICATION
     Dosage: UNK
  6. GABAPENTINE [Suspect]
     Active Substance: GABAPENTIN
     Indication: NEURALGIA
     Dosage: 2700 MILLIGRAM, QD (1 TABLET OF 800 MG AND 1 CAPSULE OF 100 MG, EACH MORNING, NOON AND EVENING)
     Route: 065
     Dates: start: 2017

REACTIONS (3)
  - Toxicity to various agents [Fatal]
  - Overdose [Fatal]
  - Drug abuse [Unknown]
